FAERS Safety Report 23316174 (Version 1)
Quarter: 2023Q4

REPORT INFORMATION
  Report Type: Spontaneous
  Country: US (occurrence: None)
  Receive Date: 20231219
  Receipt Date: 20231219
  Transmission Date: 20240110
  Serious: No
  Sender: FDA-Public Use
  Company Number: US-ROCHE-3416401

PATIENT

DRUGS (1)
  1. ENSPRYNG [Suspect]
     Active Substance: SATRALIZUMAB-MWGE
     Indication: Product used for unknown indication
     Route: 065

REACTIONS (6)
  - Headache [Unknown]
  - Influenza like illness [Unknown]
  - Arthralgia [Unknown]
  - Fatigue [Unknown]
  - Brain fog [Unknown]
  - Mental disorder [Unknown]
